FAERS Safety Report 5706072-6 (Version None)
Quarter: 2008Q2

REPORT INFORMATION
  Report Type: 
  Country: None (occurrence: None)
  Receive Date: 20080415
  Receipt Date: 20080408
  Transmission Date: 20081010
  Serious: No
  Sender: FDA-Public Use
  Company Number: US-BAXTER-2008BH001985

PATIENT
  Age: 68 Year
  Sex: Female
  Weight: 188 kg

DRUGS (4)
  1. HEPARIN SODIUM [Suspect]
     Indication: ATRIAL FIBRILLATION
     Route: 058
     Dates: start: 20080128, end: 20080305
  2. HEPARIN SODIUM [Suspect]
     Route: 058
     Dates: start: 20080128, end: 20080305
  3. ZITHROMAX [Concomitant]
     Indication: INJECTION SITE INFECTION
     Route: 048
     Dates: start: 20080304, end: 20080307
  4. SEPTRA DS [Concomitant]
     Indication: INJECTION SITE INFECTION
     Dosage: DOSE UNIT:UNKNOWN
     Route: 048
     Dates: start: 20080304, end: 20080315

REACTIONS (7)
  - ASTHENIA [None]
  - HYPOTENSION [None]
  - INJECTION SITE ERYTHEMA [None]
  - INJECTION SITE INFECTION [None]
  - MALAISE [None]
  - NAUSEA [None]
  - VOMITING [None]
